FAERS Safety Report 18715823 (Version 2)
Quarter: 2021Q1

REPORT INFORMATION
  Report Type: Spontaneous
  Country: US (occurrence: US)
  Receive Date: 20210108
  Receipt Date: 20210212
  Transmission Date: 20210419
  Serious: No
  Sender: FDA-Public Use
  Company Number: US-009507513-2101USA001328

PATIENT
  Sex: Female
  Weight: 51.25 kg

DRUGS (1)
  1. NEXPLANON [Suspect]
     Active Substance: ETONOGESTREL
     Indication: CONTRACEPTION
     Dosage: 68 MILLIGRAM (1 IMPLANT), ONE TIME
     Route: 059
     Dates: start: 20200406, end: 20201027

REACTIONS (1)
  - Metrorrhagia [Unknown]

NARRATIVE: CASE EVENT DATE: 2020
